FAERS Safety Report 10959868 (Version 3)
Quarter: 2015Q2

REPORT INFORMATION
  Report Type: Spontaneous
  Country: US (occurrence: None)
  Receive Date: 20150325
  Receipt Date: 20150417
  Transmission Date: 20150821
  Serious: Yes (Hospitalization, Other)
  Sender: FDA-Public Use
  Company Number: US-H14001-15-00479

PATIENT
  Age: 65 Year
  Sex: Male

DRUGS (5)
  1. LISINOPRIL (LISINOPRIL) [Concomitant]
     Active Substance: LISINOPRIL
  2. BABY ASPIRIN (ACETYLSALICYLIC ACID) [Concomitant]
     Active Substance: ASPIRIN
  3. LEVOTHYROXINE (LEVOTHYROXINE) [Concomitant]
     Active Substance: LEVOTHYROXINE
  4. TESTOSTERONE ENANTHATE. [Suspect]
     Active Substance: TESTOSTERONE ENANTHATE
     Indication: BLOOD TESTOSTERONE DECREASED
     Dosage: EVERY FEW WEEKS
     Dates: start: 2012, end: 20121001
  5. TESTOSTERONE CYPIONATE. [Suspect]
     Active Substance: TESTOSTERONE CYPIONATE
     Indication: BLOOD TESTOSTERONE DECREASED
     Dosage: EVERY FEW WEEKS
     Dates: start: 20121001, end: 20140625

REACTIONS (11)
  - Pain [None]
  - Transient ischaemic attack [None]
  - Anhedonia [None]
  - Cerebrovascular accident [None]
  - Anxiety [None]
  - Unevaluable event [None]
  - Quality of life decreased [None]
  - Emotional distress [None]
  - Fatigue [None]
  - Injury [None]
  - Mental disorder [None]

NARRATIVE: CASE EVENT DATE: 201210
